FAERS Safety Report 16127086 (Version 1)
Quarter: 2019Q2

REPORT INFORMATION
  Report Type: Spontaneous
  Country: US (occurrence: US)
  Receive Date: 20190327
  Receipt Date: 20190327
  Transmission Date: 20190711
  Serious: Yes (Other)
  Sender: FDA-Public Use
  Company Number: None

PATIENT
  Age: 27 Year
  Sex: Female
  Weight: 85.95 kg

DRUGS (7)
  1. EXCEDRIN [Concomitant]
     Active Substance: ACETAMINOPHEN\ASPIRIN\CAFFEINE
  2. ACETAMINOPHEN. [Concomitant]
     Active Substance: ACETAMINOPHEN
  3. IBUPROFEN. [Concomitant]
     Active Substance: IBUPROFEN
  4. NAXPROXEN SODIUM [Concomitant]
  5. B-12 COMPLEX [Concomitant]
  6. PROPANOLOL [Suspect]
     Active Substance: PROPRANOLOL HYDROCHLORIDE
     Indication: MIGRAINE
     Dosage: ?          QUANTITY:1 TABLET(S);?
     Route: 048
     Dates: start: 20190305, end: 20190321
  7. VITAMIN C [Concomitant]
     Active Substance: ASCORBIC ACID

REACTIONS (19)
  - Wheezing [None]
  - Erythema [None]
  - Oropharyngeal pain [None]
  - Bronchitis [None]
  - Pyrexia [None]
  - Confusional state [None]
  - Mood altered [None]
  - Headache [None]
  - Abdominal discomfort [None]
  - Hypotension [None]
  - Vomiting [None]
  - Fluid retention [None]
  - Fatigue [None]
  - Asthenia [None]
  - Amnesia [None]
  - Diarrhoea [None]
  - Hallucination [None]
  - Lethargy [None]
  - Drug hypersensitivity [None]

NARRATIVE: CASE EVENT DATE: 20190305
